FAERS Safety Report 23020202 (Version 1)
Quarter: 2023Q4

REPORT INFORMATION
  Report Type: Spontaneous
  Country: US (occurrence: None)
  Receive Date: 20231002
  Receipt Date: 20231002
  Transmission Date: 20240110
  Serious: Yes (Death, Hospitalization)
  Sender: FDA-Public Use
  Company Number: None

PATIENT
  Age: 82 Year
  Sex: Male
  Weight: 93 kg

DRUGS (12)
  1. YESCARTA [Suspect]
     Active Substance: AXICABTAGENE CILOLEUCEL
     Indication: Diffuse large B-cell lymphoma
     Dosage: FREQUENCY : ONCE;?
     Route: 042
     Dates: start: 20230307, end: 20230307
  2. ACTEMRA [Concomitant]
     Active Substance: TOCILIZUMAB
  3. dexAMETHasone (Decadron) [Concomitant]
  4. anakinra (Kineret) [Concomitant]
  5. acyclovir (Zovirax) [Concomitant]
  6. levETIRAcetam (Keppra [Concomitant]
  7. cefepime (Maxipime [Concomitant]
  8. piperacillin-tazobactam (Zosyn [Concomitant]
  9. NOXAFIL [Concomitant]
     Active Substance: POSACONAZOLE
  10. PROTONIX [Concomitant]
     Active Substance: PANTOPRAZOLE SODIUM
  11. EPINEPHRINE [Concomitant]
     Active Substance: EPINEPHRINE
  12. NOREPINEPHRINE [Concomitant]
     Active Substance: NOREPINEPHRINE

REACTIONS (6)
  - Cytokine release syndrome [None]
  - Immune effector cell-associated neurotoxicity syndrome [None]
  - Gastrointestinal haemorrhage [None]
  - Haemodynamic instability [None]
  - Hypotension [None]
  - Hypoxia [None]

NARRATIVE: CASE EVENT DATE: 20230307
